FAERS Safety Report 24112382 (Version 1)
Quarter: 2024Q3

REPORT INFORMATION
  Report Type: Report from Study
  Country: TW (occurrence: None)
  Receive Date: 20240719
  Receipt Date: 20240719
  Transmission Date: 20241017
  Serious: Yes (Hospitalization)
  Sender: ASTRAZENECA
  Company Number: 2021A007430

PATIENT
  Age: 46 Year
  Sex: Female

DRUGS (1)
  1. IMFINZI [Suspect]
     Active Substance: DURVALUMAB
     Route: 042
     Dates: start: 20201022

REACTIONS (3)
  - Blood bilirubin increased [Unknown]
  - Jaundice [Unknown]
  - Platelet count decreased [Unknown]
